FAERS Safety Report 9805239 (Version 1)
Quarter: 2014Q1

REPORT INFORMATION
  Report Type: Spontaneous
  Country: US (occurrence: None)
  Receive Date: 20140106
  Receipt Date: 20140106
  Transmission Date: 20141002
  Serious: Yes (Hospitalization)
  Sender: FDA-Public Use
  Company Number: UTC-042535

PATIENT
  Age: 66 Year
  Sex: Female
  Weight: 72.1 kg

DRUGS (2)
  1. TYVASO (6 MICROGRAM, AEROSOL FOR INHALATION) (TREPROSTINIL SODIUM) [Suspect]
     Indication: COR PULMONALE CHRONIC
     Route: 055
     Dates: start: 20131209
  2. REVATIO [Concomitant]

REACTIONS (1)
  - Dyspnoea [None]
